FAERS Safety Report 7194836-4 (Version None)
Quarter: 2010Q4

REPORT INFORMATION
  Report Type: 
  Country: None (occurrence: None)
  Receive Date: 20101223
  Receipt Date: 20100920
  Transmission Date: 20110411
  Serious: No
  Sender: FDA-Public Use
  Company Number: US-AMGEN-KDL439397

PATIENT

DRUGS (10)
  1. ENBREL [Suspect]
     Indication: PRODUCT USED FOR UNKNOWN INDICATION
     Dosage: 50 MG, 2 TIMES/WK
     Route: 058
  2. PAROXETINE HYDROCHLORIDE [Concomitant]
     Dosage: 37.5 MG, UNK
  3. OMEPRAZOLE [Concomitant]
     Dosage: 20 MG, UNK
  4. LAMOTRIGINE [Concomitant]
     Dosage: 100 MG, UNK
  5. LEVOTHYROXINE SODIUM [Concomitant]
     Dosage: 100 A?G, UNK
  6. QUETIAPINE [Concomitant]
     Dosage: 200 MG, UNK
  7. ERGOCALCIFEROL [Concomitant]
     Dosage: 1000 IU, UNK
  8. MULTI-VITAMINS [Concomitant]
     Dosage: UNK UNK, UNK
  9. CALCIUM/VITAMIN D [Concomitant]
     Dosage: UNK UNK, UNK
  10. PYRIDOXINE HYDROCHLORIDE [Concomitant]
     Dosage: 500 MG, UNK

REACTIONS (3)
  - INJECTION SITE ERYTHEMA [None]
  - INJECTION SITE SWELLING [None]
  - PRURITUS [None]
